FAERS Safety Report 6482885-0 (Version None)
Quarter: 2009Q4

REPORT INFORMATION
  Report Type: 
  Country: None (occurrence: None)
  Receive Date: 20091204
  Receipt Date: 20091119
  Transmission Date: 20100525
  Serious: Yes (Other)
  Sender: FDA-Public Use
  Company Number: POMP-1000734

PATIENT
  Age: 62 Year
  Sex: Female
  Weight: 52 kg

DRUGS (1)
  1. MYOZYME [Suspect]
     Indication: GLYCOGEN STORAGE DISEASE TYPE II
     Dosage: 1100 MG, INTRAVENOUS
     Route: 042
     Dates: start: 20061221, end: 20090930

REACTIONS (2)
  - MUSCULAR WEAKNESS [None]
  - MYALGIA [None]
